FAERS Safety Report 5431113-3 (Version None)
Quarter: 2007Q3

REPORT INFORMATION
  Report Type: 
  Country: None (occurrence: None)
  Receive Date: 20070830
  Receipt Date: 20070216
  Transmission Date: 20080115
  Serious: No
  Sender: FDA-Public Use
  Company Number: A0640053A

PATIENT
  Age: 35 Year
  Sex: Female

DRUGS (2)
  1. WELLBUTRIN XL [Suspect]
     Indication: STRESS
     Dosage: 300MG PER DAY
     Route: 048
     Dates: start: 20061101, end: 20070213
  2. SYNTHROID [Concomitant]

REACTIONS (2)
  - DRUG INEFFECTIVE [None]
  - STOMACH DISCOMFORT [None]
